FAERS Safety Report 7366841-6 (Version None)
Quarter: 2011Q1

REPORT INFORMATION
  Report Type: 
  Country: None (occurrence: None)
  Receive Date: 20110311
  Receipt Date: 20110302
  Transmission Date: 20110831
  Serious: Yes (Other)
  Sender: FDA-Public Use
  Company Number: 027783

PATIENT
  Sex: Female

DRUGS (4)
  1. CLOBAZAM [Concomitant]
  2. PARACETAMOL [Concomitant]
  3. KEPPRA [Suspect]
     Indication: EPILEPSY
     Dosage: 6 ML BID
  4. EPILIM [Concomitant]

REACTIONS (2)
  - OFF LABEL USE [None]
  - DYSPHAGIA [None]
